FAERS Safety Report 25721139 (Version 2)
Quarter: 2025Q4

REPORT INFORMATION
  Report Type: Spontaneous
  Country: EU (occurrence: EU)
  Receive Date: 20250825
  Receipt Date: 20251106
  Transmission Date: 20260118
  Serious: Yes (Hospitalization, Other)
  Sender: DR REDDYS
  Company Number: None

PATIENT
  Age: 83 Year
  Sex: Female

DRUGS (2)
  1. PREGABALIN [Suspect]
     Active Substance: PREGABALIN
     Indication: Product used for unknown indication
     Dosage: 210.0 MILLIGRAM/KILOGRAM, UNK
     Route: 065
  2. PREGABALIN [Suspect]
     Active Substance: PREGABALIN
     Dosage: 210 (MG KG-1)
     Route: 048

REACTIONS (8)
  - Toxicity to various agents [Unknown]
  - Prescribed overdose [Unknown]
  - Intentional overdose [Unknown]
  - Loss of consciousness [Unknown]
  - Confusional state [Unknown]
  - Somnolence [Unknown]
  - Headache [Unknown]
  - Toxicity to various agents [Unknown]
